FAERS Safety Report 5909067-2 (Version None)
Quarter: 2008Q4

REPORT INFORMATION
  Report Type: 
  Country: None (occurrence: None)
  Receive Date: 20081001
  Receipt Date: 20080923
  Transmission Date: 20090506
  Serious: Yes (Life-Threatening, Hospitalization)
  Sender: FDA-Public Use
  Company Number: THQ2008A01912

PATIENT
  Age: 55 Year
  Sex: Male

DRUGS (7)
  1. LANSOPRAZOLE [Suspect]
     Indication: DRUG USE FOR UNKNOWN INDICATION
  2. CRESTOR [Suspect]
     Indication: DRUG USE FOR UNKNOWN INDICATION
  3. DIAZEPAM [Suspect]
     Indication: DRUG USE FOR UNKNOWN INDICATION
  4. DICLOFENAC [Suspect]
     Indication: DRUG USE FOR UNKNOWN INDICATION
  5. LEVEMIR [Suspect]
     Indication: DIABETES MELLITUS
  6. NOVORAPID (INSULIN ASPART) [Suspect]
     Indication: DIABETES MELLITUS
  7. RAMIPRIL [Suspect]
     Indication: DRUG USE FOR UNKNOWN INDICATION

REACTIONS (9)
  - CONDITION AGGRAVATED [None]
  - CONJUNCTIVITIS [None]
  - GENERAL PHYSICAL HEALTH DETERIORATION [None]
  - HERPES ZOSTER [None]
  - RASH ERYTHEMATOUS [None]
  - RASH MACULAR [None]
  - RENAL IMPAIRMENT [None]
  - SEPSIS [None]
  - TOXIC EPIDERMAL NECROLYSIS [None]
